FAERS Safety Report 12475807 (Version 2)
Quarter: 2016Q2

REPORT INFORMATION
  Report Type: Spontaneous
  Country: ES (occurrence: ES)
  Receive Date: 20160617
  Receipt Date: 20160622
  Transmission Date: 20160815
  Serious: Yes (Death)
  Sender: FDA-Public Use
  Company Number: ES-JNJFOC-20160613541

PATIENT
  Age: 98 Year
  Sex: Female

DRUGS (3)
  1. HALOPERIDOL ESTEVE [Interacting]
     Active Substance: HALOPERIDOL
     Indication: AGITATION
     Dosage: DOSE: 2 MG/ML, BOTTLE OF 5 ML
     Route: 065
     Dates: start: 20160329, end: 20160402
  2. TRAZODONE HYDROCHLORIDE. [Interacting]
     Active Substance: TRAZODONE HYDROCHLORIDE
     Indication: DEMENTIA
     Dosage: 30 TABLETS
     Route: 065
     Dates: start: 20160329, end: 20160402
  3. RISPERDAL [Suspect]
     Active Substance: RISPERIDONE
     Indication: DEMENTIA
     Dosage: 20 TABLETS
     Route: 065
     Dates: start: 20160329, end: 20160402

REACTIONS (3)
  - Drug interaction [Unknown]
  - Cardiac failure [Fatal]
  - Coma [Fatal]

NARRATIVE: CASE EVENT DATE: 20160329
